FAERS Safety Report 8946666 (Version 2)
Quarter: 2013Q1

REPORT INFORMATION
  Report Type: Spontaneous
  Country: US (occurrence: US)
  Receive Date: 20121204
  Receipt Date: 20130204
  Transmission Date: 20140127
  Serious: No
  Sender: FDA-Public Use
  Company Number: US-AMGEN-USASP2012076770

PATIENT
  Age: 62 Year
  Sex: Female
  Weight: 70.75 kg

DRUGS (1)
  1. ENBREL [Suspect]
     Indication: RHEUMATOID ARTHRITIS
     Dosage: 50 MG, QWK
     Dates: start: 20120216, end: 20121127

REACTIONS (7)
  - Ear infection [Recovered/Resolved]
  - Pleural effusion [Recovered/Resolved]
  - Ear pain [Recovered/Resolved]
  - Sinusitis [Recovered/Resolved]
  - Tooth abscess [Recovered/Resolved]
  - Bronchitis [Recovered/Resolved]
  - Pharyngitis [Recovered/Resolved]
